FAERS Safety Report 20977628 (Version 1)
Quarter: 2022Q2

REPORT INFORMATION
  Report Type: Spontaneous
  Country: EG (occurrence: EG)
  Receive Date: 20220618
  Receipt Date: 20220618
  Transmission Date: 20220721
  Serious: Yes (Death)
  Sender: FDA-Public Use
  Company Number: EG-ABBVIE-22K-048-4439236-00

PATIENT

DRUGS (2)
  1. OMBITASVIR\PARITAPREVIR\RITONAVIR [Suspect]
     Active Substance: OMBITASVIR\PARITAPREVIR\RITONAVIR
     Indication: Hepatitis C
     Route: 048
  2. RIBAVIRIN [Suspect]
     Active Substance: RIBAVIRIN
     Indication: Hepatitis C
     Route: 065

REACTIONS (27)
  - Pulmonary oedema [Fatal]
  - Hypotension [Fatal]
  - Shock [Fatal]
  - Retroperitoneal haematoma [Fatal]
  - Myocardial infarction [Fatal]
  - Liver disorder [Unknown]
  - Thrombocytopenia [Unknown]
  - Hiccups [Unknown]
  - Hypertension [Unknown]
  - Urinary tract infection [Unknown]
  - Cellulitis [Unknown]
  - Vaginal haemorrhage [Unknown]
  - Lower respiratory tract infection [Unknown]
  - Sleep disorder [Unknown]
  - Abdominal discomfort [Unknown]
  - Decreased appetite [Unknown]
  - Respiratory distress [Unknown]
  - Dizziness [Unknown]
  - Blood alkaline phosphatase increased [Unknown]
  - Muscle spasms [Unknown]
  - Anaemia [Unknown]
  - Fatigue [Unknown]
  - Asthenia [Unknown]
  - Headache [Unknown]
  - Pruritus [Unknown]
  - Therapy non-responder [Unknown]
  - Hepatitis C [Unknown]
